FAERS Safety Report 7552048-6 (Version None)
Quarter: 2011Q2

REPORT INFORMATION
  Report Type: 
  Country: None (occurrence: None)
  Receive Date: 20110616
  Receipt Date: 20110607
  Transmission Date: 20111010
  Serious: Yes (Hospitalization, Other)
  Sender: FDA-Public Use
  Company Number: US-ASTRAZENECA-2011SE11733

PATIENT
  Age: 902 Month
  Sex: Female
  Weight: 72.6 kg

DRUGS (7)
  1. LISINOPRIL [Suspect]
     Route: 048
  2. METOPROLOL TARTRATE [Suspect]
     Route: 048
  3. NORVASC [Concomitant]
     Route: 048
  4. ARIMIDEX [Suspect]
     Route: 048
  5. CLOPIDOGREL BISULFATE [Concomitant]
     Route: 048
  6. EFFEXOR [Concomitant]
     Route: 048
  7. ASPIRIN [Concomitant]
     Route: 048

REACTIONS (17)
  - BUNDLE BRANCH BLOCK LEFT [None]
  - BRADYARRHYTHMIA [None]
  - ERUCTATION [None]
  - PERIPHERAL COLDNESS [None]
  - ANXIETY [None]
  - CORONARY ARTERY DISEASE [None]
  - DYSPNOEA [None]
  - HYPERHIDROSIS [None]
  - CHEST PAIN [None]
  - BLOOD PRESSURE DECREASED [None]
  - CATHETERISATION CARDIAC [None]
  - DYSPEPSIA [None]
  - NAUSEA [None]
  - MYOCARDIAL INFARCTION [None]
  - ARTHROPATHY [None]
  - BACK PAIN [None]
  - KNEE ARTHROPLASTY [None]
